FAERS Safety Report 5427455-8 (Version None)
Quarter: 2007Q3

REPORT INFORMATION
  Report Type: 
  Country: None (occurrence: None)
  Receive Date: 20070824
  Receipt Date: 20070824
  Transmission Date: 20080115
  Serious: Yes (Disabling)
  Sender: FDA-Public Use
  Company Number: None

PATIENT
  Age: 45 Year
  Sex: Male
  Weight: 56.7 kg

DRUGS (1)
  1. GEODON [Suspect]
     Indication: AGITATION
     Dosage: 20MG ONE-TIME IM
     Route: 030
     Dates: start: 20070803, end: 20070803

REACTIONS (3)
  - OBSTRUCTIVE AIRWAYS DISORDER [None]
  - SOMNOLENCE [None]
  - SWOLLEN TONGUE [None]
